FAERS Safety Report 7065504-4 (Version None)
Quarter: 2010Q4

REPORT INFORMATION
  Report Type: 
  Country: None (occurrence: None)
  Receive Date: 20101027
  Receipt Date: 20101018
  Transmission Date: 20110411
  Serious: Yes (Other)
  Sender: FDA-Public Use
  Company Number: US-PFIZER INC-2010132226

PATIENT
  Sex: Male
  Weight: 38.095 kg

DRUGS (3)
  1. NEURONTIN [Suspect]
     Indication: ABDOMINAL PAIN
     Dosage: 300 MG, 1X/DAY
     Route: 048
     Dates: start: 20100101, end: 20100101
  2. NEURONTIN [Suspect]
     Dosage: 300 MG, 2X/DAY
     Route: 048
     Dates: start: 20100101, end: 20101017
  3. MIRALAX [Concomitant]
     Indication: LAXATIVE SUPPORTIVE CARE
     Dosage: 17 G, 2X/DAY
     Dates: start: 20101001

REACTIONS (2)
  - COUGH [None]
  - VISION BLURRED [None]
